FAERS Safety Report 9216419 (Version 1)
Quarter: 2013Q2

REPORT INFORMATION
  Report Type: Spontaneous
  Country: US (occurrence: US)
  Receive Date: 20130408
  Receipt Date: 20130408
  Transmission Date: 20140414
  Serious: Yes (Other)
  Sender: FDA-Public Use
  Company Number: US-BAYER-2013-041447

PATIENT
  Age: 88 Year
  Sex: Female
  Weight: 65.76 kg

DRUGS (6)
  1. PHILLIPS^ MILK OF MAGNESIA [Suspect]
     Indication: CONSTIPATION
     Dosage: 3 TBSP, QD
     Route: 048
     Dates: start: 201302, end: 20130328
  2. WARFARIN [Concomitant]
  3. BETAPACE [Concomitant]
  4. LEVOTHYROXINE [Concomitant]
  5. AVAPRO [Concomitant]
  6. TYLENOL NOS [Concomitant]

REACTIONS (2)
  - Rectal haemorrhage [Not Recovered/Not Resolved]
  - Incorrect drug administration duration [None]
